FAERS Safety Report 5824598-1 (Version None)
Quarter: 2008Q3

REPORT INFORMATION
  Report Type: 
  Country: None (occurrence: None)
  Receive Date: 20080728
  Receipt Date: 20080722
  Transmission Date: 20090109
  Serious: No
  Sender: FDA-Public Use
  Company Number: US-KINGPHARMUSA00001-K200800812

PATIENT

DRUGS (8)
  1. ALTACE [Suspect]
     Indication: CARDIAC FAILURE
     Dosage: 2.5 MG, BID
     Route: 048
  2. ALTACE [Suspect]
     Dosage: 2.5 MG, QD
     Route: 048
  3. ALTACE [Suspect]
     Dosage: 2.5 MG, BID
     Route: 048
     Dates: start: 20080617
  4. ALTACE [Suspect]
     Dosage: 2.5 MG, QD
     Route: 048
  5. CARVEDILOL [Concomitant]
     Dosage: 6.25 MG, UNK
  6. AMLODIPINE [Concomitant]
     Dosage: 5 MG, UNK
  7. SIMVASTATIN [Concomitant]
     Dosage: 40 MG, UNK
  8. ASPIRIN [Concomitant]
     Dosage: 75 MG, UNK

REACTIONS (3)
  - ANXIETY [None]
  - DYSPNOEA [None]
  - PANIC ATTACK [None]
